FAERS Safety Report 10472801 (Version 3)
Quarter: 2014Q4

REPORT INFORMATION
  Report Type: Report from Study
  Country: BR (occurrence: BR)
  Receive Date: 20140924
  Receipt Date: 20141222
  Transmission Date: 20150528
  Serious: Yes (Death, Hospitalization, Other)
  Sender: FDA-Public Use
  Company Number: BR-SA-2014SA129877

PATIENT
  Age: 83 Year
  Sex: Female

DRUGS (2)
  1. LANTUS [Suspect]
     Active Substance: INSULIN GLARGINE
     Indication: DIABETES MELLITUS
     Route: 058
  2. DEVICE NOS [Concomitant]
     Active Substance: DEVICE
     Indication: DEVICE THERAPY

REACTIONS (8)
  - Abasia [Unknown]
  - Death [Fatal]
  - Renal disorder [Unknown]
  - Cardiac failure [Unknown]
  - Oedema [Unknown]
  - Unevaluable event [Unknown]
  - Femur fracture [Recovering/Resolving]
  - Urinary tract infection [Recovered/Resolved]

NARRATIVE: CASE EVENT DATE: 2014
